FAERS Safety Report 6050377-9 (Version None)
Quarter: 2009Q1

REPORT INFORMATION
  Report Type: 
  Country: None (occurrence: None)
  Receive Date: 20090126
  Receipt Date: 20090115
  Transmission Date: 20090719
  Serious: Yes (Other)
  Sender: FDA-Public Use
  Company Number: BE-JNJFOC-20090103951

PATIENT
  Age: 40 Year
  Sex: Female

DRUGS (2)
  1. RINOMAR [Suspect]
     Indication: SINUSITIS
     Route: 048
  2. RINOMAR [Suspect]
     Indication: RHINITIS
     Route: 048

REACTIONS (1)
  - COMPLEX REGIONAL PAIN SYNDROME [None]
